FAERS Safety Report 15470641 (Version 10)
Quarter: 2020Q2

REPORT INFORMATION
  Report Type: Spontaneous
  Country: US (occurrence: US)
  Receive Date: 20181005
  Receipt Date: 20200529
  Transmission Date: 20200713
  Serious: No
  Sender: FDA-Public Use
  Company Number: US-PFIZER INC-2018397641

PATIENT
  Age: 60 Year
  Sex: Female

DRUGS (5)
  1. XELJANZ XR [Suspect]
     Active Substance: TOFACITINIB CITRATE
     Indication: ARTHRALGIA
     Dosage: 11 MG, DAILY
     Route: 048
     Dates: start: 20180329, end: 2018
  2. XELJANZ XR [Suspect]
     Active Substance: TOFACITINIB CITRATE
     Indication: POLYARTHRITIS
     Dosage: UNK
     Dates: start: 201811
  3. XELJANZ XR [Suspect]
     Active Substance: TOFACITINIB CITRATE
     Dosage: 11 MG, DAILY
     Route: 048
     Dates: start: 20200413
  4. XELJANZ XR [Suspect]
     Active Substance: TOFACITINIB CITRATE
     Indication: RHEUMATOID ARTHRITIS
     Dosage: 11 MG, DAILY
     Route: 048
     Dates: start: 20190329
  5. XELJANZ XR [Suspect]
     Active Substance: TOFACITINIB CITRATE
     Dosage: 11 MG, DAILY
     Route: 048
     Dates: start: 201904

REACTIONS (12)
  - Productive cough [Unknown]
  - Joint swelling [Unknown]
  - Sleep apnoea syndrome [Unknown]
  - Nasopharyngitis [Unknown]
  - Peripheral swelling [Unknown]
  - Palpitations [Unknown]
  - Pain in extremity [Unknown]
  - Malaise [Unknown]
  - Oropharyngeal pain [Recovered/Resolved]
  - Cough [Recovered/Resolved]
  - Nasal congestion [Unknown]
  - Arthralgia [Unknown]

NARRATIVE: CASE EVENT DATE: 201811
